FAERS Safety Report 4645371-6 (Version None)
Quarter: 2005Q2

REPORT INFORMATION
  Report Type: 
  Country: None (occurrence: None)
  Receive Date: 20050425
  Receipt Date: 20050412
  Transmission Date: 20051028
  Serious: Yes (Life-Threatening)
  Sender: FDA-Public Use
  Company Number: 2005057945

PATIENT
  Age: 73 Year
  Sex: Female
  Weight: 60 kg

DRUGS (6)
  1. GABAPENTIN [Suspect]
     Indication: RHEUMATOID ARTHRITIS
     Dosage: 900 MG (300 MG, 3 IN 1 D), ORAL
     Route: 048
  2. TRAMADOL HCL [Suspect]
     Indication: RHEUMATOID ARTHRITIS
     Dosage: 300 MG (150 MG, 2 IN 1 D), ORAL
     Route: 048
     Dates: start: 20041025, end: 20041030
  3. ALENDRONATE SODIUM [Concomitant]
  4. CALCIUM CARBONATE/COLECALCIFEROL (CALCIUM CARBONATE, COLECALCIFEROL) [Concomitant]
  5. DRUG USED IN DIABETES (DRUG USED IN DIABETES) [Concomitant]
  6. TRAMADOL HCL [Concomitant]

REACTIONS (4)
  - CONFUSIONAL STATE [None]
  - DIZZINESS [None]
  - DRY MOUTH [None]
  - SCOTOMA [None]
